FAERS Safety Report 19231500 (Version 2)
Quarter: 2021Q3

REPORT INFORMATION
  Report Type: Report from Study
  Country: US (occurrence: US)
  Receive Date: 20210507
  Receipt Date: 20210825
  Transmission Date: 20211014
  Serious: Yes (Life-Threatening, Hospitalization, Other)
  Sender: FDA-Public Use
  Company Number: US-REGENERON PHARMACEUTICALS, INC.-2020-45450

PATIENT

DRUGS (27)
  1. AMANTADINE. [Concomitant]
     Active Substance: AMANTADINE HYDROCHLORIDE
     Indication: LETHARGY
  2. DOCUSATE SODIUM. [Concomitant]
     Active Substance: DOCUSATE SODIUM
     Indication: CONSTIPATION
     Dosage: 200 MG (100 MG,2 IN 1 D)
     Route: 048
     Dates: start: 20200328
  3. ACETAMINOPHEN. [Concomitant]
     Active Substance: ACETAMINOPHEN
     Indication: PYREXIA
     Dosage: 650 MG,AS REQUIRED
     Route: 054
     Dates: start: 20200323, end: 20200414
  4. ACETAMINOPHEN. [Concomitant]
     Active Substance: ACETAMINOPHEN
     Dosage: 650 MG,ONCE
     Route: 054
     Dates: start: 20200430, end: 20200430
  5. PIPERACILLIN TAZOBACTAM PA [Concomitant]
     Active Substance: PIPERACILLIN SODIUM\TAZOBACTAM SODIUM
     Indication: URINARY TRACT INFECTION
     Dosage: 11.25 G ( 3.75 GM, 1 IN 8 HR)
     Route: 042
     Dates: start: 20200430
  6. VELEDIMEX [Suspect]
     Active Substance: VELEDIMEX
     Dosage: 20 MG, 1 IN 1 D
     Route: 048
     Dates: start: 20200329, end: 20200331
  7. LEVETIRACETAM. [Concomitant]
     Active Substance: LEVETIRACETAM
     Indication: SEIZURE
     Dosage: 1500 MG (750 MG, 2 IN 1 D)
     Route: 048
     Dates: start: 20200401
  8. METHYLPHENIDATE                    /00083802/ [Concomitant]
     Active Substance: METHYLPHENIDATE
     Indication: SOMNOLENCE
     Dosage: 20 MG (10MG, 2 IN 1 D)
     Route: 048
     Dates: start: 20200404
  9. METHYLPHENIDATE                    /00083802/ [Concomitant]
     Active Substance: METHYLPHENIDATE
     Indication: LETHARGY
  10. POTASSIUM CHLORIDE. [Concomitant]
     Active Substance: POTASSIUM CHLORIDE
     Indication: HYPOKALAEMIA
     Dosage: 20 MILLIEQUIVALENTS,AS REQUIRED
     Route: 042
     Dates: start: 20200410, end: 20200412
  11. POTASSIUM CHLORIDE. [Concomitant]
     Active Substance: POTASSIUM CHLORIDE
     Dosage: 20 MILLIEQUIVALENTS,AS REQUIRED
     Route: 042
     Dates: start: 20200423
  12. ROCEPHIN [Concomitant]
     Active Substance: CEFTRIAXONE SODIUM
     Indication: URINARY TRACT INFECTION
     Dosage: 1 G (1 G, 1 IN 1 D)
     Route: 042
     Dates: start: 20200427, end: 20200427
  13. GLUCOSE [Concomitant]
     Active Substance: DEXTROSE
     Indication: HYPERNATRAEMIA
     Dosage: 75 ML, ONCE
     Route: 042
     Dates: start: 20200423, end: 20200423
  14. LOVENOX [Concomitant]
     Active Substance: ENOXAPARIN SODIUM
     Indication: DEEP VEIN THROMBOSIS
     Dosage: 40 MG (40 MG, 1 IN 1 D)
     Route: 058
     Dates: start: 20200427
  15. AD?RTS?HIL?12 [Suspect]
     Active Substance: INVESTIGATIONAL PRODUCT
     Indication: GLIOBLASTOMA
     Dosage: 2.0 X 10 ^11; RIGHT FRONTAL (0.1 ML,2.0 X 10^11)
     Route: 036
     Dates: start: 20200318, end: 20200318
  16. AMOXICILLIN SODIUM W/CLAVULANIC ACID [Concomitant]
     Active Substance: AMOXICILLIN\CLAVULANATE POTASSIUM
     Indication: URINARY TRACT INFECTION
     Dosage: 875?125 MG (1 IN 12 HR)
     Route: 048
     Dates: start: 20200406, end: 20200413
  17. MEROPENEM. [Concomitant]
     Active Substance: MEROPENEM
     Indication: INFECTION
     Dosage: 1 GM (1 GM,1 IN 1 D)
     Route: 042
     Dates: start: 20200428, end: 20200430
  18. SENNOSIDES A+B [Concomitant]
     Active Substance: SENNOSIDES A AND B
     Indication: CONSTIPATION
     Dosage: 8.6 MG (8.6 MG, 1 IN 1 D)
     Route: 048
     Dates: start: 20200323
  19. CEMIPLIMAB [Suspect]
     Active Substance: CEMIPLIMAB
     Indication: GLIOBLASTOMA
     Dosage: 350 MG, 1 IN 1 D
     Route: 042
     Dates: start: 20200312, end: 20200402
  20. VELEDIMEX [Suspect]
     Active Substance: VELEDIMEX
     Indication: GLIOBLASTOMA
     Dosage: 20 MG, 1 IN 1 D
     Route: 048
     Dates: start: 20200318, end: 20200325
  21. MIRTAZAPINE. [Concomitant]
     Active Substance: MIRTAZAPINE
     Indication: APPETITE DISORDER
     Dosage: 7.5 MG (7.5 MG,1 IN 1 D)
     Route: 048
     Dates: start: 20200407
  22. PANTOPRAZOLE [Concomitant]
     Active Substance: PANTOPRAZOLE
     Indication: PROPHYLAXIS
     Dosage: 40 MG (40 MG, 1 IN 1 D)
     Route: 042
     Dates: start: 20200429
  23. AMANTADINE. [Concomitant]
     Active Substance: AMANTADINE HYDROCHLORIDE
     Indication: SOMNOLENCE
     Dosage: 400 MG (200 MG, 2 IN 1 D)
     Route: 048
     Dates: start: 20200406
  24. ACETAMINOPHEN. [Concomitant]
     Active Substance: ACETAMINOPHEN
     Indication: PAIN
     Dosage: 1000 MG, AS REQUIRED
     Dates: start: 20200427
  25. ACETAMINOPHEN. [Concomitant]
     Active Substance: ACETAMINOPHEN
     Indication: PYREXIA
     Dosage: 650 MG,AS REQUIRED
     Route: 048
     Dates: start: 20200318, end: 20200414
  26. HEPARIN [Concomitant]
     Active Substance: HEPARIN SODIUM
     Indication: DEEP VEIN THROMBOSIS
     Dosage: 15000 IU (5000 IU, 1 IN 8HR)
     Route: 058
     Dates: start: 20200404, end: 20200413
  27. DEXAMETHASONE. [Concomitant]
     Active Substance: DEXAMETHASONE
     Indication: SOMNOLENCE
     Dosage: 4 MG ( 4MG, 1 IN 1 D)
     Route: 042
     Dates: start: 20200426

REACTIONS (3)
  - Sepsis [Recovered/Resolved]
  - COVID-19 [Not Recovered/Not Resolved]
  - Female genital tract fistula [Recovered/Resolved]

NARRATIVE: CASE EVENT DATE: 20200511
